FAERS Safety Report 7820971-0 (Version None)
Quarter: 2011Q4

REPORT INFORMATION
  Report Type: 
  Country: None (occurrence: None)
  Receive Date: 20111018
  Receipt Date: 20111013
  Transmission Date: 20120403
  Serious: Yes (Hospitalization)
  Sender: FDA-Public Use
  Company Number: JP-ABBOTT-11P-087-0864303-00

PATIENT
  Sex: Male
  Weight: 50 kg

DRUGS (6)
  1. HUMIRA [Suspect]
     Dates: start: 20110414, end: 20110414
  2. HUMIRA [Suspect]
     Dates: start: 20110428
  3. RAMOSETRON HYDROCHLORIDE [Concomitant]
     Indication: DIARRHOEA
     Dosage: 10MCG DAILY
     Route: 048
     Dates: end: 20110511
  4. HUMIRA [Suspect]
     Indication: CROHN'S DISEASE
     Route: 058
     Dates: start: 20110331, end: 20110331
  5. LOXOPROFEN SODIUM [Concomitant]
     Indication: PAIN
     Route: 048
     Dates: end: 20110816
  6. REBAMIPIDE [Concomitant]
     Indication: PROPHYLAXIS AGAINST GASTROINTESTINAL ULCER
     Dosage: 200MG DAILY
     Route: 048
     Dates: end: 20110816

REACTIONS (1)
  - SUBILEUS [None]
